FAERS Safety Report 6166439-1 (Version None)
Quarter: 2009Q2

REPORT INFORMATION
  Report Type: 
  Country: None (occurrence: None)
  Receive Date: 20090422
  Receipt Date: 20090422
  Transmission Date: 20091009
  Serious: Yes (Other)
  Sender: FDA-Public Use
  Company Number: None

PATIENT
  Age: 32 Year
  Sex: Female
  Weight: 69.8539 kg

DRUGS (2)
  1. LAMICTAL [Suspect]
     Indication: MYOCLONIC EPILEPSY
     Dosage: 200 MG EVERY MORNING PO; 350 MG EVERY NIGHT PO
     Route: 048
     Dates: start: 20090301, end: 20090416
  2. . [Concomitant]

REACTIONS (2)
  - CONVULSION [None]
  - DIZZINESS [None]
